FAERS Safety Report 5108259-2 (Version None)
Quarter: 2006Q3

REPORT INFORMATION
  Report Type: 
  Country: None (occurrence: None)
  Receive Date: 20060919
  Receipt Date: 20060908
  Transmission Date: 20061208
  Serious: Yes (Other)
  Sender: FDA-Public Use
  Company Number: 2006GB01621

PATIENT
  Sex: Female

DRUGS (7)
  1. QUETIAPINE [Suspect]
     Indication: PSYCHOTIC DISORDER
     Route: 048
     Dates: start: 20050720
  2. DEPAKOTE [Suspect]
     Indication: AFFECTIVE DISORDER
     Route: 048
     Dates: start: 20050720
  3. DEPAKOTE [Suspect]
     Indication: PSYCHOTIC DISORDER
     Route: 048
     Dates: start: 20050720
  4. HUMALOG [Concomitant]
     Indication: DIABETES MELLITUS
  5. INSULIN GLARGINE [Concomitant]
     Indication: DIABETES MELLITUS
     Dates: start: 20050720
  6. LEVOTHYROXINE SODIUM [Concomitant]
     Indication: HYPOTHYROIDISM
  7. LOSARTAN POSTASSIUM [Concomitant]
     Indication: HYPERTENSION

REACTIONS (4)
  - DRUG INTERACTION [None]
  - HOT FLUSH [None]
  - HYPOGLYCAEMIA [None]
  - HYPOGLYCAEMIA UNAWARENESS [None]
